FAERS Safety Report 10545025 (Version 4)
Quarter: 2014Q4

REPORT INFORMATION
  Report Type: Report from Study
  Country: US (occurrence: US)
  Receive Date: 20141027
  Receipt Date: 20141112
  Transmission Date: 20150529
  Serious: Yes (Death, Life-Threatening)
  Sender: FDA-Public Use
  Company Number: US-CELGENE-USA-2014101679

PATIENT
  Age: 78 Year
  Sex: Male
  Weight: 67.9 kg

DRUGS (27)
  1. ASPIRIN. [Concomitant]
     Active Substance: ASPIRIN
     Dosage: 800 MILLIGRAM
     Route: 048
     Dates: start: 201004, end: 20141001
  2. ACETAMINOPHEN. [Concomitant]
     Active Substance: ACETAMINOPHEN
     Dosage: 4 MILLIGRAM
     Route: 048
     Dates: start: 20140521, end: 20140910
  3. PROCRIT [Concomitant]
     Active Substance: ERYTHROPOIETIN
     Indication: THROMBOCYTOPENIA
     Dosage: 2.5 MILLIGRAM
     Route: 058
     Dates: start: 20140625, end: 20140923
  4. MIRALAX [Concomitant]
     Active Substance: POLYETHYLENE GLYCOL 3350
     Indication: CONSTIPATION
     Dosage: 2 MILLIGRAM
     Route: 048
     Dates: start: 20140918, end: 20141001
  5. LASIX [Concomitant]
     Active Substance: FUROSEMIDE
     Indication: HYPERTENSION
     Route: 048
     Dates: start: 20140516, end: 20141001
  6. PROCRIT [Concomitant]
     Active Substance: ERYTHROPOIETIN
     Route: 058
     Dates: start: 20140924, end: 20141001
  7. CC-5013 [Suspect]
     Active Substance: LENALIDOMIDE
     Indication: LYMPHOMA
     Route: 048
     Dates: start: 20140821, end: 20140911
  8. DIPHENHYDRAMINE [Concomitant]
     Active Substance: DIPHENHYDRAMINE
     Dosage: 2000 IU (INTERNATIONAL UNIT)
     Route: 048
     Dates: start: 20140618, end: 20140910
  9. MEGESTROL ACETATE. [Concomitant]
     Active Substance: MEGESTROL ACETATE
     Indication: DECREASED APPETITE
     Route: 048
     Dates: start: 20140915, end: 20141001
  10. VITAMIN D3 [Concomitant]
     Active Substance: CHOLECALCIFEROL
     Indication: SUPPLEMENTATION THERAPY
     Dosage: 10 MILLIGRAM
     Route: 048
     Dates: start: 201004, end: 20141001
  11. IMODIUM [Concomitant]
     Active Substance: LOPERAMIDE HYDROCHLORIDE
     Dosage: 650 MILLIGRAM
     Route: 048
     Dates: start: 20140826, end: 20141001
  12. CC-5013 [Suspect]
     Active Substance: LENALIDOMIDE
     Route: 048
     Dates: start: 20140918, end: 20141001
  13. RITUXIMAB [Suspect]
     Active Substance: RITUXIMAB
     Route: 041
     Dates: start: 20140918, end: 20140918
  14. NACL [Concomitant]
     Active Substance: SODIUM CHLORIDE
     Dosage: 6 MILLIGRAM
     Route: 041
     Dates: start: 20140829, end: 20140920
  15. SENNA DOCUSATE [Concomitant]
     Indication: CONSTIPATION
     Dosage: 25 MILLIGRAM
     Route: 048
     Dates: start: 20140918, end: 20141001
  16. ROBITUSSIN DM [Concomitant]
     Active Substance: DEXTROMETHORPHAN HYDROBROMIDE\GUAIFENESIN
     Indication: COUGH
     Route: 048
     Dates: start: 20141001, end: 20141001
  17. COZAAR [Concomitant]
     Active Substance: LOSARTAN POTASSIUM
     Indication: HYPERTENSION
     Route: 048
     Dates: start: 2005, end: 20141001
  18. IRON [Concomitant]
     Active Substance: IRON
     Indication: SUPPLEMENTATION THERAPY
     Route: 048
     Dates: start: 201004, end: 20141001
  19. NORVASC [Concomitant]
     Active Substance: AMLODIPINE BESYLATE
     Indication: HYPERTENSION
     Dosage: 20 MILLIGRAM
     Route: 048
     Dates: start: 2004, end: 20141001
  20. PREVACID [Concomitant]
     Active Substance: LANSOPRAZOLE
     Indication: DYSPEPSIA
     Dosage: 81 MILLIGRAM
     Route: 048
     Dates: start: 2000, end: 20141001
  21. HYTRIN [Concomitant]
     Active Substance: TERAZOSIN HYDROCHLORIDE
     Indication: HYPERTENSION
     Route: 048
     Dates: start: 20110720, end: 20140821
  22. RITUXIMAB [Suspect]
     Active Substance: RITUXIMAB
     Indication: LYMPHOMA
     Route: 041
     Dates: start: 20140821, end: 20140910
  23. MOXIFLOXACIN HCL [Concomitant]
     Active Substance: MOXIFLOXACIN
     Indication: INFECTION PROPHYLAXIS
     Route: 048
     Dates: start: 20140702, end: 20141001
  24. VYTORIN [Concomitant]
     Active Substance: EZETIMIBE\SIMVASTATIN
     Indication: HYPERLIPIDAEMIA
     Route: 048
     Dates: start: 20140702, end: 20141001
  25. SIMVASTATIN. [Concomitant]
     Active Substance: SIMVASTATIN
     Indication: BLOOD CHOLESTEROL INCREASED
     Dosage: 100 MILLIGRAM
     Route: 048
     Dates: start: 2009, end: 20141001
  26. ALLOPURINOL. [Concomitant]
     Active Substance: ALLOPURINOL
     Dosage: 10 MILLIGRAM
     Route: 048
     Dates: start: 20140820, end: 20140910
  27. ALLEGRA-D [Concomitant]
     Active Substance: FEXOFENADINE\PSEUDOEPHEDRINE
     Indication: PRURITUS
     Dosage: 600 MILLIGRAM
     Route: 048
     Dates: start: 20140826, end: 20141001

REACTIONS (3)
  - Sepsis [Fatal]
  - Neutropenia [Not Recovered/Not Resolved]
  - Thrombocytopenia [Not Recovered/Not Resolved]

NARRATIVE: CASE EVENT DATE: 20140924
